FAERS Safety Report 4720631-9 (Version None)
Quarter: 2005Q3

REPORT INFORMATION
  Report Type: 
  Country: None (occurrence: None)
  Receive Date: 20050719
  Receipt Date: 20050408
  Transmission Date: 20060218
  Serious: Yes (Hospitalization, Other)
  Sender: FDA-Public Use
  Company Number: 2005056921

PATIENT
  Age: 40 Year
  Sex: Female
  Weight: 65.7716 kg

DRUGS (6)
  1. CELEBREX [Suspect]
     Indication: BACK PAIN
  2. CELEBREX [Suspect]
     Indication: TENDONITIS
  3. BEXTRA [Suspect]
     Indication: BACK PAIN
  4. PARACETAMOL [Concomitant]
  5. PSEUDOEPHEDRINE HYDROCHLORIDE [Concomitant]
  6. MEDROXYPROGESTERONE ACETATE [Concomitant]

REACTIONS (2)
  - DRUG INEFFECTIVE [None]
  - URINARY INCONTINENCE [None]
